FAERS Safety Report 7146071-3 (Version None)
Quarter: 2010Q4

REPORT INFORMATION
  Report Type: 
  Country: None (occurrence: None)
  Receive Date: 20101123
  Receipt Date: 20101109
  Transmission Date: 20110411
  Serious: Yes (Hospitalization)
  Sender: FDA-Public Use
  Company Number: 021769

PATIENT
  Age: 32 Year
  Sex: Male
  Weight: 157 kg

DRUGS (11)
  1. PHENTERMINE HYDROCHLORIDE [Suspect]
     Indication: DECREASED APPETITE
     Dosage: (37.5 MG BID)
  2. ESOMEPRAZOLE [Concomitant]
  3. LEVOTHYROXINE [Concomitant]
  4. IRBESARTAN AND HYDROCHLOROTHIAZIDE [Concomitant]
  5. METOPROLOL SUCCINATE [Concomitant]
  6. METOCLOPRAMIDE [Concomitant]
  7. DICYCLOMMINE /00068601/ [Concomitant]
  8. ACETAMINOPHEN AND OXYCODONE HCL [Concomitant]
  9. OXYCODONE [Concomitant]
  10. TESTOSTERONE [Concomitant]
  11. PROCHLORPERAZINE [Concomitant]

REACTIONS (15)
  - ALANINE AMINOTRANSFERASE INCREASED [None]
  - ASPARTATE AMINOTRANSFERASE INCREASED [None]
  - BACK PAIN [None]
  - BLOOD URINE PRESENT [None]
  - CALCULUS URINARY [None]
  - CELLULITIS [None]
  - GROIN PAIN [None]
  - HYPERURICAEMIA [None]
  - MUSCULAR WEAKNESS [None]
  - PAROTITIS [None]
  - RENAL FAILURE ACUTE [None]
  - RHABDOMYOLYSIS [None]
  - RIGHT VENTRICULAR HYPERTROPHY [None]
  - SINUS TACHYCARDIA [None]
  - TROPONIN I INCREASED [None]
